FAERS Safety Report 7512988-0 (Version None)
Quarter: 2011Q2

REPORT INFORMATION
  Report Type: 
  Country: None (occurrence: None)
  Receive Date: 20110531
  Receipt Date: 20110525
  Transmission Date: 20111010
  Serious: Yes (Hospitalization, Other)
  Sender: FDA-Public Use
  Company Number: FR-PFIZER INC-2011112393

PATIENT
  Age: 58 Year
  Sex: Male

DRUGS (8)
  1. MEDIATENSYL [Concomitant]
     Dosage: UNK
     Dates: start: 20101101
  2. IRBESARTAN [Concomitant]
  3. NEORAL [Concomitant]
     Dosage: UNK
     Dates: start: 20100601
  4. AMITRIPTYLINE HCL [Concomitant]
     Dosage: UNK
     Dates: start: 20100701
  5. AMLODIPINE BESYLATE [Suspect]
     Indication: HYPERTENSION
     Dosage: UNK
     Route: 048
     Dates: start: 20100701, end: 20110324
  6. LASIX [Concomitant]
  7. RITUXIMAB [Concomitant]
     Dosage: UNK
     Dates: start: 20110125, end: 20110215
  8. LYRICA [Suspect]
     Indication: NEUROPATHY PERIPHERAL
     Dosage: UNK
     Route: 048
     Dates: start: 20100601, end: 20110324

REACTIONS (3)
  - VENTRICULAR DYSFUNCTION [None]
  - HYPOTENSION [None]
  - OEDEMA PERIPHERAL [None]
